FAERS Safety Report 18712358 (Version 1)
Quarter: 2021Q1

REPORT INFORMATION
  Report Type: Report from Study
  Country: US (occurrence: US)
  Receive Date: 20210107
  Receipt Date: 20210107
  Transmission Date: 20210419
  Serious: Yes (Other)
  Sender: FDA-Public Use
  Company Number: US-JNJFOC-20201250858

PATIENT
  Age: 72 Year
  Sex: Male

DRUGS (1)
  1. UPTRAVI [Suspect]
     Active Substance: SELEXIPAG
     Indication: PULMONARY HYPERTENSION
     Dosage: STRENGTH: 600MCG AND 800MCG. HE CURRENTLY TAKES 600MCG IN THE MORNING AND 800MCG IN THE EVENING
     Route: 048
     Dates: start: 20190313

REACTIONS (1)
  - Hydrocephalus [Unknown]
